FAERS Safety Report 11864621 (Version 3)
Quarter: 2016Q1

REPORT INFORMATION
  Report Type: Spontaneous
  Country: US (occurrence: US)
  Receive Date: 20151223
  Receipt Date: 20160105
  Transmission Date: 20160526
  Serious: No
  Sender: FDA-Public Use
  Company Number: US-HORIZON-ACT-0223-2015

PATIENT
  Age: 27 Year
  Sex: Male

DRUGS (5)
  1. LEVAQUIN [Concomitant]
     Active Substance: LEVOFLOXACIN
  2. MARINOL [Concomitant]
     Active Substance: DRONABINOL
     Indication: VOMITING
  3. ACTIMMUNE [Suspect]
     Active Substance: INTERFERON GAMMA-1B
     Indication: CHRONIC GRANULOMATOUS DISEASE
     Dosage: 100 ?G 3 TIMES WEEKLY
  4. BACTRIM [Concomitant]
     Active Substance: SULFAMETHOXAZOLE\TRIMETHOPRIM
  5. LINEZOLID. [Concomitant]
     Active Substance: LINEZOLID
     Indication: STAPHYLOCOCCAL INFECTION

REACTIONS (5)
  - Fungal infection [Unknown]
  - Rhinorrhoea [Unknown]
  - Vomiting [Unknown]
  - Staphylococcal infection [Unknown]
  - Influenza [Unknown]
